FAERS Safety Report 10501723 (Version 1)
Quarter: 2014Q4

REPORT INFORMATION
  Report Type: Spontaneous
  Country: US (occurrence: US)
  Receive Date: 20141007
  Receipt Date: 20141007
  Transmission Date: 20150528
  Serious: No
  Sender: FDA-Public Use
  Company Number: US-ASTRAZENECA-2014SE69501

PATIENT
  Age: 77 Year
  Sex: Male
  Weight: 79.4 kg

DRUGS (6)
  1. AVADART [Concomitant]
     Indication: PROSTATE CANCER
     Route: 048
     Dates: start: 201209
  2. MONTELUKAST [Concomitant]
     Active Substance: MONTELUKAST SODIUM
     Indication: CHRONIC OBSTRUCTIVE PULMONARY DISEASE
     Route: 048
     Dates: start: 2013
  3. LORATADINE. [Concomitant]
     Active Substance: LORATADINE
     Indication: COUGH
     Route: 048
     Dates: start: 20140905
  4. SYMBICORT [Suspect]
     Active Substance: BUDESONIDE\FORMOTEROL FUMARATE DIHYDRATE
     Indication: CHRONIC OBSTRUCTIVE PULMONARY DISEASE
     Dosage: 160MCG BID
     Route: 055
     Dates: start: 201406, end: 20140811
  5. OMEPRAZOLE. [Suspect]
     Active Substance: OMEPRAZOLE
     Indication: COUGH
     Route: 048
     Dates: start: 20140905
  6. THEOPHYLLINE [Concomitant]
     Active Substance: THEOPHYLLINE ANHYDROUS
     Indication: CHRONIC OBSTRUCTIVE PULMONARY DISEASE
     Route: 048
     Dates: start: 20140811

REACTIONS (2)
  - Breast swelling [Not Recovered/Not Resolved]
  - Cough [Recovering/Resolving]

NARRATIVE: CASE EVENT DATE: 2014
